FAERS Safety Report 20053850 (Version 6)
Quarter: 2022Q1

REPORT INFORMATION
  Report Type: Report from Study
  Country: ES (occurrence: None)
  Receive Date: 20211110
  Receipt Date: 20220228
  Transmission Date: 20220423
  Serious: Yes (Hospitalization)
  Sender: FDA-Public Use
  Company Number: ES-ROCHE-2911516

PATIENT
  Age: 59 Year
  Sex: Male
  Weight: 74 kg

DRUGS (13)
  1. ATEZOLIZUMAB [Suspect]
     Active Substance: ATEZOLIZUMAB
     Indication: Hepatocellular carcinoma
     Dosage: FIRST ATEZOLIZUMAB DOSE WAS GIVEN AT 14:55. ON 30/JUL/2021 AT 12:15, LAST DOSE 1200 OF ATEZOLIZUMAB
     Route: 041
     Dates: start: 20210701
  2. BEVACIZUMAB [Suspect]
     Active Substance: BEVACIZUMAB
     Indication: Hepatocellular carcinoma
     Dosage: FIRST BEVACIZUMAB DOSE WAS GIVEN AT 16:00. ON 30/JUL/2021 AT 12:50, LAST DOSE OF BEVACIZUMAB 1245 MG
     Route: 042
     Dates: start: 20210701
  3. LEVOFLOXACIN [Concomitant]
     Active Substance: LEVOFLOXACIN
     Indication: Pyrexia
     Route: 048
     Dates: start: 20210721
  4. ACETYLCISTEIN [Concomitant]
     Indication: Pyrexia
     Route: 048
     Dates: start: 20210721
  5. PIPERACILLIN AND TAZOBACTAM [Concomitant]
     Active Substance: PIPERACILLIN SODIUM\TAZOBACTAM SODIUM
     Indication: Intestinal obstruction
     Route: 042
     Dates: start: 20210809, end: 20210824
  6. OMEPRAZOLE [Concomitant]
     Active Substance: OMEPRAZOLE
     Indication: Intestinal obstruction
     Route: 042
     Dates: start: 20210810, end: 20210825
  7. ACETAMINOPHEN [Concomitant]
     Active Substance: ACETAMINOPHEN
     Indication: Intestinal obstruction
     Route: 042
     Dates: start: 20210810, end: 20210825
  8. METAMIZOL [Concomitant]
     Active Substance: METAMIZOLE SODIUM
     Indication: Intestinal obstruction
     Route: 042
     Dates: start: 20210810, end: 20210825
  9. MORPHINE [Concomitant]
     Active Substance: MORPHINE
     Indication: Intestinal obstruction
     Route: 058
     Dates: start: 20210810, end: 20210825
  10. FUROSEMIDE [Concomitant]
     Active Substance: FUROSEMIDE
     Indication: Intestinal obstruction
     Route: 042
     Dates: start: 20210810, end: 20210825
  11. LORAZEPAM [Concomitant]
     Active Substance: LORAZEPAM
     Indication: Intestinal obstruction
     Route: 060
     Dates: start: 20210810, end: 20210825
  12. LACTULOSE [Concomitant]
     Active Substance: LACTULOSE
     Indication: Intestinal obstruction
     Route: 048
     Dates: start: 20210810, end: 20210825
  13. CIPROFLOXACIN [Concomitant]
     Active Substance: CIPROFLOXACIN
     Indication: Subdiaphragmatic abscess
     Route: 048
     Dates: start: 20210825, end: 20210829

REACTIONS (1)
  - Blood bilirubin increased [Recovered/Resolved]

NARRATIVE: CASE EVENT DATE: 20210913
